FAERS Safety Report 8127503-0 (Version None)
Quarter: 2012Q1

REPORT INFORMATION
  Report Type: 
  Country: None (occurrence: None)
  Receive Date: 20120210
  Receipt Date: 20120201
  Transmission Date: 20120608
  Serious: Yes (Hospitalization, Other)
  Sender: FDA-Public Use
  Company Number: US-AMGEN-US387808

PATIENT
  Age: 16 Year
  Sex: Female
  Weight: 37.5 kg

DRUGS (5)
  1. NAPROXEN [Concomitant]
     Dosage: 375 MG IN AM/250 MG IN PM
     Dates: start: 20081001
  2. FOLIC ACID [Concomitant]
     Dosage: 1 MG, DAILY 6 DAYS/WEEK
     Dates: start: 20081001
  3. METHOTREXATE [Suspect]
     Dosage: 17.5 MG, QWK
     Route: 058
     Dates: start: 20081001
  4. OMNICEF [Concomitant]
     Dosage: 300 MG, BID
     Dates: start: 20090916
  5. ETANERCEPT [Suspect]
     Indication: JUVENILE ARTHRITIS
     Dosage: 28 MG, QWK
     Route: 058
     Dates: start: 20081201, end: 20090801

REACTIONS (2)
  - HAEMOPHILUS INFECTION [None]
  - COUGH [None]
